FAERS Safety Report 10357333 (Version 2)
Quarter: 2014Q3

REPORT INFORMATION
  Report Type: Spontaneous
  Country: US (occurrence: None)
  Receive Date: 20140730
  Receipt Date: 20140929
  Transmission Date: 20150326
  Serious: Yes (Hospitalization, Other)
  Sender: FDA-Public Use
  Company Number: AMAG201400266

PATIENT
  Age: 94 Year
  Sex: Female
  Weight: 81.6 kg

DRUGS (13)
  1. FERAHEME [Suspect]
     Active Substance: FERUMOXYTOL NON-STOICHIOMETRIC MAGNETITE
     Indication: NEPHROGENIC ANAEMIA
     Dosage: 180 MG, SINGLE, INFUSION
     Dates: start: 20140715, end: 20140715
  2. LISINOPRIL (LISINOPRIL) [Concomitant]
     Active Substance: LISINOPRIL
  3. HYDROCHLOROTHIAZIDE (HYDROCHLOROTHIAZIDE) [Concomitant]
     Active Substance: HYDROCHLOROTHIAZIDE
  4. LEVOTHYROXINE SODIUM (LEVOTHYROXINE SODIUM) [Concomitant]
  5. TYLENOL W/CODEINE NO 3 (CODEINE PHOSPHATE, PARACETAMOL) [Concomitant]
  6. CALCIUM (CALCIUM GLUBIONATE) [Concomitant]
  7. MIRALAX (MACROGOL) [Concomitant]
  8. ALLOPURINOL (ALLOPURINOL) [Concomitant]
     Active Substance: ALLOPURINOL
  9. CARVEDILOL (CARVEDILOL) [Concomitant]
     Active Substance: CARVEDILOL
  10. VITAMIN D3 (VITAMIN D3) [Concomitant]
  11. MULTIVITAMINS (ASCORBIC ACID, ERGOCALCIFEROL, FOLIC ACID, NICOTINAMIDE, PANTHENOL, RETINOL, RIBOFLAVIN, THIAMIN HYDROCHLORIDE) [Concomitant]
  12. GABAPENTIN (GABAPENTIN) [Concomitant]
     Active Substance: GABAPENTIN
  13. FERAHEME [Suspect]
     Active Substance: FERUMOXYTOL NON-STOICHIOMETRIC MAGNETITE
     Indication: IRON DEFICIENCY ANAEMIA
     Dosage: 180 MG, SINGLE, INFUSION
     Dates: start: 20140715, end: 20140715

REACTIONS (8)
  - Pneumonia aspiration [None]
  - Pulseless electrical activity [None]
  - Dyspnoea [None]
  - Infusion site extravasation [None]
  - Pulmonary oedema [None]
  - Dyskinesia [None]
  - Dizziness [None]
  - Cardio-respiratory arrest [None]

NARRATIVE: CASE EVENT DATE: 201407
